FAERS Safety Report 4683604-0 (Version None)
Quarter: 2005Q2

REPORT INFORMATION
  Report Type: 
  Country: None (occurrence: None)
  Receive Date: 20050602
  Receipt Date: 20050325
  Transmission Date: 20051028
  Serious: Yes (Death, Other)
  Sender: FDA-Public Use
  Company Number: USA041082607

PATIENT
  Age: 39 Year
  Sex: Female
  Weight: 59 kg

DRUGS (8)
  1. CYMBALTA [Suspect]
     Indication: DEPRESSION
     Dosage: 60 MG
     Dates: start: 20050921, end: 20051012
  2. PROZAC [Suspect]
     Indication: DEPRESSION
     Dosage: 20 MG
     Dates: end: 20040921
  3. DESIPRAMINE [Concomitant]
  4. TOPAMAX [Concomitant]
  5. SPIRONOLACTONE [Concomitant]
  6. LEVOXYL [Concomitant]
  7. ACYCLOVIR (ACICLOVIR EG) [Concomitant]
  8. ORAL CONTRACEPTIVE NOS [Concomitant]

REACTIONS (2)
  - COMPLETED SUICIDE [None]
  - DRUG INEFFECTIVE [None]
